FAERS Safety Report 12920088 (Version 1)
Quarter: 2016Q4

REPORT INFORMATION
  Report Type: Spontaneous
  Country: US (occurrence: US)
  Receive Date: 20161104
  Receipt Date: 20161104
  Transmission Date: 20170207
  Serious: Yes (Life-Threatening, Hospitalization, Disabling)
  Sender: FDA-Public Use
  Company Number: None

PATIENT
  Age: 40 Year
  Sex: Male
  Weight: 110.7 kg

DRUGS (1)
  1. BENZTROPINE MES 1MG, GENERIC EQ. UPSHEDR SMITH [Suspect]
     Active Substance: BENZTROPINE MESYLATE
     Indication: ORAL PAIN
     Route: 048
     Dates: start: 20120815, end: 20120815

REACTIONS (5)
  - Overdose [None]
  - Drug dispensing error [None]
  - Wrong drug administered [None]
  - Accidental overdose [None]
  - Wrong patient received medication [None]

NARRATIVE: CASE EVENT DATE: 20120815
